FAERS Safety Report 5590379-X (Version None)
Quarter: 2008Q1

REPORT INFORMATION
  Report Type: 
  Country: None (occurrence: None)
  Receive Date: 20080114
  Receipt Date: 20071219
  Transmission Date: 20080703
  Serious: No
  Sender: FDA-Public Use
  Company Number: US-BOEHRINGER INGELHEIM PHARMACEUTICALS, INC.-2007-BP-26583BP

PATIENT
  Sex: Male

DRUGS (8)
  1. SPIRIVA [Suspect]
     Indication: SILICOSIS
     Route: 055
     Dates: start: 20071001, end: 20071213
  2. OXYGEN [Concomitant]
     Indication: SILICOSIS
     Route: 055
  3. METOPROLOL [Concomitant]
     Indication: HEART RATE
  4. LANOXIN [Concomitant]
     Indication: CARDIAC DISORDER
  5. ACIPHEX [Concomitant]
     Indication: STOMACH DISCOMFORT
  6. ZETIA [Concomitant]
     Indication: BLOOD CHOLESTEROL
  7. LISINOPRIL [Concomitant]
     Indication: BLOOD PRESSURE
     Dates: end: 20071101
  8. DIOVAN [Concomitant]
     Indication: SUPRAVENTRICULAR TACHYCARDIA
     Dates: start: 20071107

REACTIONS (1)
  - INHIBITORY DRUG INTERACTION [None]
